FAERS Safety Report 6388291-1 (Version None)
Quarter: 2009Q3

REPORT INFORMATION
  Report Type: 
  Country: None (occurrence: None)
  Receive Date: 20090930
  Receipt Date: 20090922
  Transmission Date: 20100115
  Serious: Yes (Life-Threatening, Hospitalization)
  Sender: FDA-Public Use
  Company Number: 20097227

PATIENT
  Age: 71 Year
  Sex: Female

DRUGS (1)
  1. BACLOFEN [Suspect]
     Indication: MUSCLE SPASTICITY
     Dosage: 5-8MCG, DAILY, INTRATHECAL - SEE B
     Route: 037
     Dates: start: 20080917

REACTIONS (4)
  - AMYOTROPHIC LATERAL SCLEROSIS [None]
  - CARDIO-RESPIRATORY ARREST [None]
  - DISEASE PROGRESSION [None]
  - RESPIRATORY DISTRESS [None]
